FAERS Safety Report 13551790 (Version 3)
Quarter: 2018Q1

REPORT INFORMATION
  Report Type: Spontaneous
  Country: FR (occurrence: FR)
  Receive Date: 20170516
  Receipt Date: 20180228
  Transmission Date: 20180508
  Serious: Yes (Death, Life-Threatening, Other)
  Sender: FDA-Public Use
  Company Number: FR-BAXALTA-2017BLT003914

PATIENT
  Age: 58 Year
  Sex: Male

DRUGS (7)
  1. FEIBA NF [Suspect]
     Active Substance: ANTI-INHIBITOR COAGULANT COMPLEX
     Indication: OFF LABEL USE
     Dosage: UNK
     Dates: start: 20170425, end: 20170425
  2. ZINNAT                             /00454602/ [Suspect]
     Active Substance: CEFUROXIME SODIUM
     Indication: ANTIBIOTIC PROPHYLAXIS
     Dosage: 3 G, UNK
     Route: 042
     Dates: start: 20170425, end: 20170425
  3. FEIBA NF [Suspect]
     Active Substance: ANTI-INHIBITOR COAGULANT COMPLEX
     Indication: HAEMORRHAGE PROPHYLAXIS
     Dosage: 3000 IU, UNK
     Route: 042
     Dates: start: 20170425, end: 20170425
  4. ETOMIDATE. [Suspect]
     Active Substance: ETOMIDATE
     Indication: GENERAL ANAESTHESIA
     Dosage: 40 MG, UNK
     Route: 042
     Dates: start: 20170425, end: 20170425
  5. ELIQUIS [Concomitant]
     Active Substance: APIXABAN
     Indication: CARDIOVASCULAR EVENT PROPHYLAXIS
  6. SEVOFLURANE. [Suspect]
     Active Substance: SEVOFLURANE
     Indication: GENERAL ANAESTHESIA
     Dosage: UNK
     Route: 055
     Dates: start: 20170425, end: 20170425
  7. ESMERON [Suspect]
     Active Substance: ROCURONIUM BROMIDE
     Indication: GENERAL ANAESTHESIA
     Dosage: 100 MG, UNK
     Route: 042
     Dates: start: 20170425, end: 20170425

REACTIONS (5)
  - Cardio-respiratory arrest [Unknown]
  - Gastrointestinal ischaemia [Unknown]
  - Multiple organ dysfunction syndrome [Fatal]
  - Haemorrhagic disorder [Unknown]
  - Metabolic disorder [Unknown]

NARRATIVE: CASE EVENT DATE: 20170425
